FAERS Safety Report 19116675 (Version 3)
Quarter: 2021Q3

REPORT INFORMATION
  Report Type: Spontaneous
  Country: US (occurrence: US)
  Receive Date: 20210409
  Receipt Date: 20210816
  Transmission Date: 20211014
  Serious: No
  Sender: FDA-Public Use
  Company Number: US-ASTRAZENECA-2021A128355

PATIENT
  Sex: Female
  Weight: 76.7 kg

DRUGS (3)
  1. FASENRA [Suspect]
     Active Substance: BENRALIZUMAB
     Indication: ASTHMA
     Dosage: UNKNOWN DOSE EVERY EIGHT WEEKS
     Route: 065
     Dates: start: 201911
  2. FASENRA [Suspect]
     Active Substance: BENRALIZUMAB
     Indication: ASTHMA
     Dosage: UNKNOWN DOSE EVERY EIGHT WEEKS
     Route: 065
     Dates: start: 20200422
  3. FASENRA [Suspect]
     Active Substance: BENRALIZUMAB
     Indication: ASTHMA
     Dosage: UNKNOWN DOSE EVERY EIGHT WEEKS
     Route: 065
     Dates: start: 2018

REACTIONS (6)
  - Swelling [Unknown]
  - Swelling face [Unknown]
  - Alopecia [Unknown]
  - Myalgia [Unknown]
  - Peripheral swelling [Unknown]
  - Arthralgia [Unknown]
